FAERS Safety Report 4664552-9 (Version None)
Quarter: 2005Q2

REPORT INFORMATION
  Report Type: 
  Country: None (occurrence: None)
  Receive Date: 20050518
  Receipt Date: 20050321
  Transmission Date: 20051028
  Serious: Yes (Hospitalization)
  Sender: FDA-Public Use
  Company Number: US-GLAXOSMITHKLINE-A0550624A

PATIENT
  Age: 44 Year
  Sex: Female

DRUGS (6)
  1. PAXIL CR [Suspect]
     Indication: DEPRESSION
     Dosage: 25MG PER DAY
     Route: 048
     Dates: start: 20020101, end: 20050301
  2. PAXIL [Suspect]
     Indication: DEPRESSION
     Dosage: 20MG PER DAY
     Route: 048
     Dates: start: 20050301, end: 20050430
  3. TEGRETOL [Concomitant]
  4. LORTAB [Concomitant]
     Route: 065
  5. ATIVAN [Concomitant]
     Route: 065
  6. PHENERGAN [Concomitant]
     Route: 065

REACTIONS (11)
  - AGITATION [None]
  - CARDIAC DISORDER [None]
  - CONVULSION [None]
  - DRUG WITHDRAWAL SYNDROME [None]
  - HYPERHIDROSIS [None]
  - INSOMNIA [None]
  - MANIA [None]
  - MUSCLE SPASMS [None]
  - PNEUMONIA [None]
  - RESTLESS LEGS SYNDROME [None]
  - YAWNING [None]
